FAERS Safety Report 6321625-2 (Version None)
Quarter: 2009Q3

REPORT INFORMATION
  Report Type: 
  Country: None (occurrence: None)
  Receive Date: 20090824
  Receipt Date: 20090818
  Transmission Date: 20100115
  Serious: Yes (Death)
  Sender: FDA-Public Use
  Company Number: JP-BAYER-200912912BYL

PATIENT
  Age: 67 Year
  Sex: Male
  Weight: 55 kg

DRUGS (16)
  1. NEXAVAR [Suspect]
     Indication: HEPATIC CANCER STAGE IV
     Dosage: TOTAL DAILY DOSE: 800 MG  UNIT DOSE: 200 MG
     Route: 048
     Dates: start: 20090724, end: 20090804
  2. TAKEPRON [Concomitant]
     Dosage: BEFORE NEXAVAR ADMINISTRATION
     Route: 048
     Dates: end: 20090804
  3. ALDACTONE [Concomitant]
     Dosage: BEFORE NEXAVAR ADMINISTRATION
     Route: 048
     Dates: end: 20090804
  4. LASIX [Concomitant]
     Dosage: BEFORE NEXAVAR ADMINISTRATION
     Route: 048
     Dates: end: 20090804
  5. NICHICODE [Concomitant]
     Dosage: BEFORE NEXAVAR ADMINISTRATION
     Route: 048
     Dates: end: 20090804
  6. BROCIN [Concomitant]
     Dosage: UNIT DOSE: 3.3 %
     Route: 048
     Dates: end: 20090804
  7. CLEANAL [Concomitant]
     Dosage: BEFORE NEXAVAR ADMINISTRATION
     Route: 048
     Dates: end: 20090804
  8. HOKUNALIN:TAPE [Concomitant]
     Dosage: BEFORE NEXAVAR ADMINISTRATION
     Route: 062
     Dates: end: 20090804
  9. HEAVY MAGNESIUM OXIDE [Concomitant]
     Route: 048
     Dates: start: 20090727, end: 20090804
  10. LACTULOSE [Concomitant]
     Dosage: UNIT DOSE: 60 %
     Route: 048
     Dates: start: 20090727, end: 20090804
  11. MEROPEN [Concomitant]
     Indication: INFECTION
     Route: 042
     Dates: start: 20090731, end: 20090806
  12. FUTHAN [Concomitant]
     Indication: DISSEMINATED INTRAVASCULAR COAGULATION
     Route: 042
     Dates: start: 20090803, end: 20090805
  13. SEISHOKU [Concomitant]
     Route: 042
     Dates: start: 20090801, end: 20090806
  14. GLUCOSE [Concomitant]
     Dosage: UNIT DOSE: 5 %
     Route: 042
     Dates: start: 20090801, end: 20090806
  15. VITAMEDIN [Concomitant]
     Route: 042
     Dates: start: 20090801, end: 20090806
  16. KAYTWO N [Concomitant]
     Route: 042
     Dates: start: 20090801, end: 20090806

REACTIONS (1)
  - HEPATIC NEOPLASM MALIGNANT [None]
